FAERS Safety Report 20823098 (Version 1)
Quarter: 2022Q2

REPORT INFORMATION
  Report Type: Spontaneous
  Country: IE (occurrence: IE)
  Receive Date: 20220512
  Receipt Date: 20220512
  Transmission Date: 20220720
  Serious: Yes (Death, Hospitalization, Other)
  Sender: FDA-Public Use
  Company Number: IE-ABBVIE-22K-229-4391218-00

PATIENT
  Age: 61 Year
  Sex: Female

DRUGS (10)
  1. VENCLEXTA [Suspect]
     Active Substance: VENETOCLAX
     Indication: Acute myeloid leukaemia
     Dosage: DURATION : 28 DAYS
     Route: 048
     Dates: start: 20201022, end: 202011
  2. VENCLEXTA [Suspect]
     Active Substance: VENETOCLAX
     Route: 048
     Dates: start: 20201126, end: 202012
  3. VENCLEXTA [Suspect]
     Active Substance: VENETOCLAX
     Route: 048
     Dates: start: 20201229, end: 202101
  4. VENCLEXTA [Suspect]
     Active Substance: VENETOCLAX
     Dosage: DURATION : 14 DAYS
     Route: 048
     Dates: start: 2021
  5. AZACITIDINE [Suspect]
     Active Substance: AZACITIDINE
     Indication: Acute myeloid leukaemia
     Route: 065
     Dates: start: 20201022
  6. POSACONAZOLE [Concomitant]
     Active Substance: POSACONAZOLE
     Indication: Antifungal prophylaxis
  7. POSACONAZOLE [Concomitant]
     Active Substance: POSACONAZOLE
     Indication: Neutropenia
  8. POSACONAZOLE [Concomitant]
     Active Substance: POSACONAZOLE
     Indication: Musculoskeletal disorder
  9. GRANULOCYTE COLONY-STIMULATING FACTOR NOS [Concomitant]
     Active Substance: GRANULOCYTE COLONY-STIMULATING FACTOR NOS
     Indication: Product used for unknown indication
  10. AMBISOME [Concomitant]
     Active Substance: AMPHOTERICIN B
     Indication: Product used for unknown indication

REACTIONS (10)
  - Death [Fatal]
  - Neutropenia [Unknown]
  - Sepsis [Unknown]
  - Febrile neutropenia [Unknown]
  - Emotional distress [Unknown]
  - Fungal infection [Unknown]
  - Bronchoscopy [Unknown]
  - Respiratory disorder [Unknown]
  - Nausea [Unknown]
  - Pyrexia [Unknown]
